FAERS Safety Report 6983385-1 (Version None)
Quarter: 2010Q3

REPORT INFORMATION
  Report Type: 
  Country: None (occurrence: None)
  Receive Date: 20100914
  Receipt Date: 20100914
  Transmission Date: 20110219
  Serious: Yes (Other)
  Sender: FDA-Public Use
  Company Number: None

PATIENT
  Age: 39 Year
  Sex: Female
  Weight: 45.8133 kg

DRUGS (8)
  1. FENTANYL [Suspect]
     Indication: NEURALGIA
     Dosage: 2 PATCHES 48 HRS TRANSDERMAL
     Route: 062
     Dates: start: 20080801, end: 20100913
  2. METHADONE HCL [Suspect]
     Dosage: 10MG 2X/DAY PO
     Route: 048
     Dates: start: 20080801, end: 20100913
  3. CLOTRIMAZOLE [Concomitant]
  4. NYSTATIN [Concomitant]
  5. FLUCONAZOLE [Concomitant]
  6. OMEPRIZOLE [Concomitant]
  7. TUMS [Concomitant]
  8. CLINDAMYCIN [Concomitant]

REACTIONS (5)
  - DRY MOUTH [None]
  - DYSGEUSIA [None]
  - DYSPEPSIA [None]
  - FUNGAL INFECTION [None]
  - PRURITUS [None]
